FAERS Safety Report 11587507 (Version 1)
Quarter: 2015Q4

REPORT INFORMATION
  Report Type: Spontaneous
  Country: US (occurrence: None)
  Receive Date: 20151001
  Receipt Date: 20151001
  Transmission Date: 20160304
  Serious: Yes (Other)
  Sender: FDA-Public Use
  Company Number: US-MDT-ADR-2015-01880

PATIENT
  Age: 26 Year
  Sex: Female

DRUGS (2)
  1. COMPOUNDED BACLOFEN INTRATHECAL [Suspect]
     Active Substance: BACLOFEN
     Indication: PAIN
  2. CLONIDINE (INTRATHECAL) [Suspect]
     Active Substance: CLONIDINE
     Indication: PAIN

REACTIONS (5)
  - Altered state of consciousness [None]
  - Ill-defined disorder [None]
  - Hormone level abnormal [None]
  - Weight increased [None]
  - Drug withdrawal syndrome [None]
